FAERS Safety Report 22311016 (Version 1)
Quarter: 2023Q2

REPORT INFORMATION
  Report Type: Spontaneous
  Country: US (occurrence: None)
  Receive Date: 20230510
  Receipt Date: 20230510
  Transmission Date: 20230722
  Serious: Yes (Hospitalization)
  Sender: FDA-Public Use
  Company Number: None

PATIENT
  Sex: Male

DRUGS (12)
  1. STELARA [Suspect]
     Active Substance: USTEKINUMAB
     Indication: Crohn^s disease
     Dosage: OTHER FREQUENCY : EVERY 28 DAYS;?
     Route: 058
     Dates: start: 20181018
  2. STELARA [Suspect]
     Active Substance: USTEKINUMAB
     Dosage: OTHER QUANTITY : 1 ML (90 MG TOTAL);?OTHER FREQUENCY : EVERY 28 DAYS;?
     Route: 058
  3. BENTYL [Concomitant]
     Active Substance: DICYCLOMINE HYDROCHLORIDE
  4. CREON [Concomitant]
     Active Substance: PANCRELIPASE AMYLASE\PANCRELIPASE LIPASE\PANCRELIPASE PROTEASE
  5. GAPANETIN [Concomitant]
  6. KEPPRA [Concomitant]
     Active Substance: LEVETIRACETAM
  7. LORATADINE POW [Concomitant]
  8. MULTI VITAMIN TAB MINERALS [Concomitant]
  9. MULTIVITAMIN DAILY [Concomitant]
  10. PROTONIX [Concomitant]
  11. SODIUM POW BICARBPM [Concomitant]
  12. SPIRIVA HANDIHLR [Concomitant]

REACTIONS (1)
  - Surgery [None]
